FAERS Safety Report 10254592 (Version 2)
Quarter: 2014Q2

REPORT INFORMATION
  Report Type: Spontaneous
  Country: BE (occurrence: BE)
  Receive Date: 20140624
  Receipt Date: 20140624
  Transmission Date: 20141212
  Serious: Yes (Other)
  Sender: FDA-Public Use
  Company Number: PHHY2014BE062611

PATIENT
  Sex: Female

DRUGS (2)
  1. MIACALCIC [Suspect]
     Dosage: 100 IU (RECEIVED 2 INJECTIONS)
     Route: 065
     Dates: start: 20140519, end: 2014
  2. MIACALCIC [Suspect]
     Dosage: 50 IU, UNK
     Route: 065
     Dates: start: 2014

REACTIONS (4)
  - Erythema [Recovering/Resolving]
  - Feeling hot [Recovering/Resolving]
  - Peripheral swelling [Recovering/Resolving]
  - Pruritus [Recovering/Resolving]
